FAERS Safety Report 24081628 (Version 2)
Quarter: 2025Q1

REPORT INFORMATION
  Report Type: Spontaneous
  Country: US (occurrence: US)
  Receive Date: 20240712
  Receipt Date: 20250222
  Transmission Date: 20250409
  Serious: No
  Sender: SANOFI AVENTIS
  Company Number: US-SA-SAC20240710000130

PATIENT
  Age: 28 Year
  Sex: Female
  Weight: 64.308 kg

DRUGS (6)
  1. DUPIXENT [Suspect]
     Active Substance: DUPILUMAB
     Indication: Nasal polyps
     Dosage: 300 MG, QOW
     Route: 058
     Dates: start: 202312
  2. LAMICTAL [Concomitant]
     Active Substance: LAMOTRIGINE
  3. VYVANSE [Concomitant]
     Active Substance: LISDEXAMFETAMINE DIMESYLATE
  4. SPIRONOLACTONE [Concomitant]
     Active Substance: SPIRONOLACTONE
  5. DIFFERIN [Concomitant]
     Active Substance: ADAPALENE
  6. REMERON [Concomitant]
     Active Substance: MIRTAZAPINE

REACTIONS (5)
  - Pharyngitis streptococcal [Not Recovered/Not Resolved]
  - Injection site urticaria [Recovering/Resolving]
  - Injection site pain [Not Recovered/Not Resolved]
  - Injection site swelling [Recovered/Resolved]
  - Injection site erythema [Recovered/Resolved]

NARRATIVE: CASE EVENT DATE: 20250202
